FAERS Safety Report 23293818 (Version 1)
Quarter: 2023Q4

REPORT INFORMATION
  Report Type: Spontaneous
  Country: PR (occurrence: None)
  Receive Date: 20231213
  Receipt Date: 20231213
  Transmission Date: 20240110
  Serious: Yes (Other)
  Sender: FDA-Public Use
  Company Number: None

PATIENT
  Age: 9 Month
  Sex: Male
  Weight: 8.55 kg

DRUGS (1)
  1. MINOXIDIL [Suspect]
     Active Substance: MINOXIDIL
     Indication: Alopecia
     Dosage: OTHER QUANTITY : 1 ML;?FREQUENCY : TWICE A DAY;?
     Route: 061
     Dates: start: 20230908, end: 20231101

REACTIONS (3)
  - Exposure via skin contact [None]
  - Hair growth abnormal [None]
  - Hair growth abnormal [None]

NARRATIVE: CASE EVENT DATE: 20231030
